FAERS Safety Report 20696710 (Version 3)
Quarter: 2022Q2

REPORT INFORMATION
  Report Type: Report from Study
  Country: CN (occurrence: CN)
  Receive Date: 20220411
  Receipt Date: 20220428
  Transmission Date: 20220721
  Serious: Yes (Hospitalization)
  Sender: FDA-Public Use
  Company Number: CN-JNJFOC-20220402130

PATIENT
  Age: 39 Year
  Sex: Male
  Weight: 53 kg

DRUGS (15)
  1. MACITENTAN [Suspect]
     Active Substance: MACITENTAN
     Indication: Pulmonary arterial hypertension
     Route: 048
     Dates: start: 20211231, end: 20220129
  2. MACITENTAN [Suspect]
     Active Substance: MACITENTAN
     Route: 048
     Dates: start: 20220130, end: 20220227
  3. MACITENTAN [Suspect]
     Active Substance: MACITENTAN
     Route: 048
     Dates: start: 20220228, end: 20220331
  4. MACITENTAN [Suspect]
     Active Substance: MACITENTAN
     Route: 048
     Dates: start: 20220405
  5. ORYZANOL [Concomitant]
     Active Substance: GAMMA ORYZANOL
     Indication: Lacunar infarction
     Route: 048
     Dates: start: 20211224
  6. ORYZANOL [Concomitant]
     Active Substance: GAMMA ORYZANOL
     Route: 048
     Dates: start: 20220401, end: 20220404
  7. BETASTINE [Concomitant]
     Dates: start: 20211224
  8. XANAX [Concomitant]
     Active Substance: ALPRAZOLAM
     Indication: Insomnia
     Route: 048
     Dates: start: 20220401, end: 20220404
  9. NICERGOLINE [Concomitant]
     Active Substance: NICERGOLINE
     Indication: Lacunar infarction
     Route: 042
     Dates: start: 20220403, end: 20220404
  10. FLUPENTIXOL\MELITRACEN [Concomitant]
     Active Substance: FLUPENTIXOL\MELITRACEN
     Indication: Anxiety disorder
     Route: 048
     Dates: start: 20220404, end: 20220404
  11. METOPROLOL SUCCINATE [Concomitant]
     Active Substance: METOPROLOL SUCCINATE
     Indication: Pulmonary arterial hypertension
     Route: 048
     Dates: start: 20220404, end: 20220404
  12. METOPROLOL SUCCINATE [Concomitant]
     Active Substance: METOPROLOL SUCCINATE
     Route: 048
     Dates: start: 20220404
  13. TADALAFIL [Concomitant]
     Active Substance: TADALAFIL
     Indication: Pulmonary arterial hypertension
     Route: 048
     Dates: start: 20211117
  14. METOPROLOL SUCCINATE [Concomitant]
     Active Substance: METOPROLOL SUCCINATE
     Indication: Pulmonary arterial hypertension
     Route: 048
     Dates: start: 20220404
  15. CALCITRIOL [Concomitant]
     Active Substance: CALCITRIOL
     Indication: Vitamin supplementation

REACTIONS (2)
  - Vertigo [Not Recovered/Not Resolved]
  - Chest pain [Recovered/Resolved]

NARRATIVE: CASE EVENT DATE: 20220330
